FAERS Safety Report 13908763 (Version 1)
Quarter: 2017Q3

REPORT INFORMATION
  Report Type: Spontaneous
  Country: TW (occurrence: TW)
  Receive Date: 20170827
  Receipt Date: 20170827
  Transmission Date: 20171127
  Serious: Yes (Other)
  Sender: FDA-Public Use
  Company Number: TW-AMGEN-TWNSP2017130470

PATIENT
  Age: 90 Year
  Sex: Male

DRUGS (1)
  1. ENBREL [Suspect]
     Active Substance: ETANERCEPT
     Indication: RHEUMATOID ARTHRITIS
     Dosage: 50 MG, ONCE PER 2 WEEKS
     Route: 058
     Dates: start: 20110614, end: 20170821

REACTIONS (2)
  - Off label use [Unknown]
  - Renal cancer [Not Recovered/Not Resolved]
